FAERS Safety Report 9832144 (Version 1)
Quarter: 2014Q1

REPORT INFORMATION
  Report Type: Report from Study
  Country: BR (occurrence: BR)
  Receive Date: 20140121
  Receipt Date: 20140121
  Transmission Date: 20141002
  Serious: Yes (Hospitalization, Other)
  Sender: FDA-Public Use
  Company Number: PHHY2014BR005936

PATIENT
  Sex: Female
  Weight: 60 kg

DRUGS (2)
  1. RASILEZ HCT [Suspect]
     Dosage: 1 DF (300 MG ALIS, 12.5 MG HYDR), DAILY
     Route: 048
  2. HIDRION [Concomitant]
     Dosage: UNK UKN, UNK

REACTIONS (4)
  - Blood glucose decreased [Recovering/Resolving]
  - Convulsion [Recovering/Resolving]
  - Malaise [Recovering/Resolving]
  - Diabetes mellitus [Recovering/Resolving]
